FAERS Safety Report 10586951 (Version 1)
Quarter: 2014Q4

REPORT INFORMATION
  Report Type: Spontaneous
  Country: US (occurrence: None)
  Receive Date: 20141114
  Receipt Date: 20141114
  Transmission Date: 20150529
  Serious: Yes (Hospitalization)
  Sender: FDA-Public Use
  Company Number: None

PATIENT
  Weight: 70.76 kg

DRUGS (3)
  1. TAXOL [Suspect]
     Active Substance: PACLITAXEL
  2. METFORMIN HYDROCHLORIDE. [Suspect]
     Active Substance: METFORMIN HYDROCHLORIDE
  3. CARBOPLATIN. [Suspect]
     Active Substance: CARBOPLATIN

REACTIONS (13)
  - Nausea [None]
  - Blood potassium decreased [None]
  - Blood glucose increased [None]
  - Dyspnoea [None]
  - Vomiting [None]
  - Diarrhoea [None]
  - Pancytopenia [None]
  - Constipation [None]
  - Dehydration [None]
  - Palpitations [None]
  - Chest discomfort [None]
  - Atrial fibrillation [None]
  - Stress [None]
